FAERS Safety Report 5767821-4 (Version None)
Quarter: 2008Q2

REPORT INFORMATION
  Report Type: 
  Country: None (occurrence: None)
  Receive Date: 20080612
  Receipt Date: 20080603
  Transmission Date: 20081010
  Serious: Yes (Other)
  Sender: FDA-Public Use
  Company Number: PHEH2008US05048

PATIENT
  Sex: Male

DRUGS (2)
  1. TRILEPTAL [Suspect]
     Indication: CONVULSION
     Dosage: 600 MG, UNK
  2. CLONAZEPAM [Concomitant]

REACTIONS (5)
  - FLASHBACK [None]
  - FRONTAL LOBE EPILEPSY [None]
  - HEAD TITUBATION [None]
  - HYPERTENSION [None]
  - PUPIL FIXED [None]
